FAERS Safety Report 12625748 (Version 1)
Quarter: 2016Q3

REPORT INFORMATION
  Report Type: Spontaneous
  Country: CN (occurrence: CN)
  Receive Date: 20160805
  Receipt Date: 20160805
  Transmission Date: 20161109
  Serious: Yes (Hospitalization)
  Sender: FDA-Public Use
  Company Number: CN-CITRON PHARMA LLC-B16-0096-AE

PATIENT
  Age: 50 Year
  Sex: Male

DRUGS (2)
  1. TRIGLIDE [Suspect]
     Active Substance: FENOFIBRATE
     Indication: PRODUCT USED FOR UNKNOWN INDICATION
     Dosage: UNK
     Route: 065
  2. LOVASTATIN. [Suspect]
     Active Substance: LOVASTATIN
     Indication: PRODUCT USED FOR UNKNOWN INDICATION
     Dosage: UNK
     Route: 065

REACTIONS (3)
  - Hyperlipidaemia [Recovered/Resolved]
  - Hyperglobulinaemia [Recovered/Resolved]
  - Thrombocytosis [Recovered/Resolved]
